FAERS Safety Report 7736867-9 (Version None)
Quarter: 2011Q3

REPORT INFORMATION
  Report Type: 
  Country: None (occurrence: None)
  Receive Date: 20110908
  Receipt Date: 20110830
  Transmission Date: 20111222
  Serious: Yes (Hospitalization, Other)
  Sender: FDA-Public Use
  Company Number: PHEH2011US02860

PATIENT
  Sex: Female

DRUGS (15)
  1. CRESTOR [Concomitant]
     Dosage: 40 MG, UNK
  2. VITAMINS NOS [Concomitant]
  3. GLUCERIA [Concomitant]
  4. JANUVIA [Concomitant]
     Dosage: 50 MG, QD
  5. INSULIN [Concomitant]
     Indication: DIABETES MELLITUS
  6. FOLTX [Concomitant]
     Dosage: 40 MG, QD
  7. POTASSIUM CHLORIDE [Concomitant]
     Dosage: UNK UKN, UNK
  8. FUROSEMIDE [Concomitant]
     Dosage: 40 UKN, QD
  9. EXELON [Suspect]
     Dosage: 4.6 MG, ONE PATCH DAILY
     Route: 062
     Dates: start: 20110501
  10. TOCUSATE [Concomitant]
     Dosage: 100 MG, DAILY
  11. BILTIAZEM [Concomitant]
     Dosage: 240 MG, QD
  12. RAMIPRIL [Concomitant]
     Dosage: UNK UKN, UNK
  13. FERREX [Concomitant]
     Dosage: 150 MG, BID
  14. PANTOPRAZOLE [Concomitant]
     Dosage: 40 MG, UNK
  15. ALLEGRA [Concomitant]
     Dosage: UNK UKN, UNK

REACTIONS (15)
  - GASTRIC ULCER [None]
  - DIZZINESS [None]
  - MUSCLE SPASMS [None]
  - HEAD INJURY [None]
  - IRRITABILITY [None]
  - HEAD DISCOMFORT [None]
  - TOOTH DISORDER [None]
  - ANXIETY [None]
  - FATIGUE [None]
  - FALL [None]
  - DIARRHOEA [None]
  - MUSCULOSKELETAL DISORDER [None]
  - DEPRESSION [None]
  - ABDOMINAL PAIN [None]
  - BLOOD POTASSIUM DECREASED [None]
